FAERS Safety Report 13872071 (Version 1)
Quarter: 2017Q3

REPORT INFORMATION
  Report Type: Report from Study
  Country: US (occurrence: US)
  Receive Date: 20170816
  Receipt Date: 20170816
  Transmission Date: 20171127
  Serious: Yes (Death)
  Sender: FDA-Public Use
  Company Number: US-ROCHE-1979159

PATIENT
  Age: 89 Year
  Sex: Female

DRUGS (1)
  1. LUCENTIS [Suspect]
     Active Substance: RANIBIZUMAB
     Indication: NEOVASCULAR AGE-RELATED MACULAR DEGENERATION
     Dosage: ONGOING-NO
     Route: 065
     Dates: start: 2010

REACTIONS (1)
  - Death [Fatal]

NARRATIVE: CASE EVENT DATE: 20170706
